FAERS Safety Report 17880749 (Version 1)
Quarter: 2020Q2

REPORT INFORMATION
  Report Type: Other
  Country: DE (occurrence: DE)
  Receive Date: 20200610
  Receipt Date: 20200610
  Transmission Date: 20200714
  Serious: Yes (Hospitalization, Other)
  Sender: FDA-Public Use
  Company Number: DE-MACLEODS PHARMACEUTICALS US LTD-MAC2020026750

PATIENT

DRUGS (7)
  1. TAMSULOSIN HYDROCHLORIDE 0.4 MG CAPSULE [Suspect]
     Active Substance: TAMSULOSIN HYDROCHLORIDE
     Indication: PRODUCT USED FOR UNKNOWN INDICATION
     Dosage: 0.4 MG, QD (0-0-1-0), CAPSULE
     Route: 048
  2. TEBONIN INTENSE 120MG [Interacting]
     Active Substance: GINKGO
     Indication: PRODUCT USED FOR UNKNOWN INDICATION
     Dosage: 120 MG, QD(0-0-1-0), TABLET
     Route: 048
  3. COAPROVEL [Interacting]
     Active Substance: HYDROCHLOROTHIAZIDE\IRBESARTAN
     Indication: PRODUCT USED FOR UNKNOWN INDICATION
     Dosage: COAPROVEL,12.5/300 MG, QD (1-0-0-0) TABLET
     Route: 048
  4. TROSPIUM [Concomitant]
     Active Substance: TROSPIUM
     Indication: PRODUCT USED FOR UNKNOWN INDICATION
     Dosage: 30 MG, QD ( 0-0-1-0), TABLET
     Route: 048
  5. ALLOPURINOL. [Concomitant]
     Active Substance: ALLOPURINOL
     Indication: PRODUCT USED FOR UNKNOWN INDICATION
     Dosage: 300 MILLIGRAM, (0.5-0-0-0), TABLET
     Route: 048
  6. FERROUS SULFATE. [Concomitant]
     Active Substance: FERROUS SULFATE
     Indication: PRODUCT USED FOR UNKNOWN INDICATION
     Dosage: 80 MILLIGRAM, (2-0-2-0), PROLONGED-RELEASE TABLET
     Route: 048
  7. SIMVA-ARISTO 20MG [Concomitant]
     Indication: PRODUCT USED FOR UNKNOWN INDICATION
     Dosage: 20 MILLIGRAM, QD ( 0-0-1-0), TABLET
     Route: 048

REACTIONS (9)
  - Dehydration [Unknown]
  - Hypotension [Unknown]
  - Labelled drug-drug interaction medication error [Unknown]
  - Tachycardia [Unknown]
  - Dizziness [Unknown]
  - Product prescribing error [Unknown]
  - Syncope [Unknown]
  - Orthostatic intolerance [Unknown]
  - Product monitoring error [Unknown]
